FAERS Safety Report 7129608-X (Version None)
Quarter: 2010Q4

REPORT INFORMATION
  Report Type: 
  Country: None (occurrence: None)
  Receive Date: 20101130
  Receipt Date: 20101116
  Transmission Date: 20110411
  Serious: Yes (Hospitalization)
  Sender: FDA-Public Use
  Company Number: DE-MYLANLABS-2009S1003397

PATIENT
  Age: 68 Year
  Sex: Male
  Weight: 93 kg

DRUGS (9)
  1. BISOPROLOL FUMARATE [Suspect]
     Indication: HYPERTENSION
     Route: 048
     Dates: end: 20080328
  2. ROXITHROMYCIN [Interacting]
     Indication: RESPIRATORY TRACT INFECTION
     Route: 048
     Dates: start: 20080325, end: 20080328
  3. ALDACTONE [Interacting]
     Indication: HYPERTENSION
     Route: 048
     Dates: end: 20080328
  4. DISALUNIL [Interacting]
     Indication: HYPERTENSION
     Route: 048
  5. NORVASC [Interacting]
     Indication: HYPERTENSION
     Route: 048
  6. ACETYLSALICYLIC ACID [Concomitant]
     Indication: TRANSIENT ISCHAEMIC ATTACK
     Route: 048
     Dates: start: 20070101
  7. ALLOPURINOL [Concomitant]
     Indication: HYPERURICAEMIA
     Route: 048
  8. PANTOPRAZOLE SODIUM [Concomitant]
     Indication: PROPHYLAXIS AGAINST GASTROINTESTINAL ULCER
     Route: 048
     Dates: start: 20070101
  9. ZOCOR [Concomitant]
     Indication: HYPERLIPIDAEMIA
     Route: 048

REACTIONS (4)
  - BRADYCARDIA [None]
  - DRUG INTERACTION [None]
  - SYNCOPE [None]
  - VOMITING [None]
